FAERS Safety Report 10114164 (Version 2)
Quarter: 2014Q4

REPORT INFORMATION
  Report Type: Other
  Country: US (occurrence: US)
  Receive Date: 20140425
  Receipt Date: 20141228
  Transmission Date: 20150528
  Serious: Yes (Death, Hospitalization, Other)
  Sender: FDA-Public Use
  Company Number: US-GSKPPD-2014GSK013206

PATIENT
  Age: 52 Year
  Sex: Male

DRUGS (6)
  1. ISORDIL [Concomitant]
     Active Substance: ISOSORBIDE DINITRATE
     Route: 048
  2. NITROGLYCERIN. [Concomitant]
     Active Substance: NITROGLYCERIN
     Dosage: PRN
     Route: 060
  3. HEPARIN [Concomitant]
     Active Substance: HEPARIN SODIUM
     Dosage: TREATMENT MEDICATION
     Dates: start: 199702
  4. AVANDIA [Suspect]
     Active Substance: ROSIGLITAZONE MALEATE
     Indication: DIABETES MELLITUS
     Dosage: AVANDIA WAS NOT LISTED AMONG THE PATIENT^S RECORDS REVIEWED
     Route: 048
  5. METOPROLOL [Concomitant]
     Active Substance: METOPROLOL
     Route: 048
  6. ASPIRIN. [Concomitant]
     Active Substance: ASPIRIN
     Route: 048

REACTIONS (2)
  - Cardio-respiratory arrest [Fatal]
  - Myocardial infarction [Recovered/Resolved]

NARRATIVE: CASE EVENT DATE: 19970212
